FAERS Safety Report 5145897-5 (Version None)
Quarter: 2006Q4

REPORT INFORMATION
  Report Type: 
  Country: None (occurrence: None)
  Receive Date: 20061106
  Receipt Date: 20061106
  Transmission Date: 20070319
  Serious: Yes (Other)
  Sender: FDA-Public Use
  Company Number: None

PATIENT
  Age: 30 Year
  Sex: Female
  Weight: 52.1637 kg

DRUGS (1)
  1. ZICAM INTENSE SINUS RELIEF ZICAM [Suspect]
     Indication: MULTIPLE ALLERGIES
     Dosage: 2 SQUIRTS EVERY 2 HOURS NASAL
     Route: 045
     Dates: start: 20061020, end: 20061103

REACTIONS (4)
  - BURNING SENSATION [None]
  - DRUG INEFFECTIVE [None]
  - NASAL DISCOMFORT [None]
  - RHINALGIA [None]
